FAERS Safety Report 7410909-2 (Version None)
Quarter: 2011Q1

REPORT INFORMATION
  Report Type: 
  Country: None (occurrence: None)
  Receive Date: 20110302
  Receipt Date: 20100811
  Transmission Date: 20110831
  Serious: Yes (Other)
  Sender: FDA-Public Use
  Company Number: 163-21880-10020084

PATIENT
  Age: 37 Year
  Sex: Male

DRUGS (6)
  1. REVLIMID [Suspect]
     Indication: MULTIPLE MYELOMA
     Dosage: 25 MG, DAILY X 21 DAYS, PO, 10 MG, 1 IN 1 D, PO, 15 MG,DAILY X 21 DAYS, PO
     Route: 048
     Dates: start: 20100114, end: 20100311
  2. REVLIMID [Suspect]
     Indication: MULTIPLE MYELOMA
     Dosage: 25 MG, DAILY X 21 DAYS, PO, 10 MG, 1 IN 1 D, PO, 15 MG,DAILY X 21 DAYS, PO
     Route: 048
     Dates: start: 20100401, end: 20100101
  3. REVLIMID [Suspect]
     Indication: MULTIPLE MYELOMA
     Dosage: 25 MG, DAILY X 21 DAYS, PO, 10 MG, 1 IN 1 D, PO, 15 MG,DAILY X 21 DAYS, PO
     Route: 048
     Dates: start: 20100501
  4. PERCOCET [Concomitant]
  5. OXYCODONE (OXYCODONE) [Concomitant]
  6. DECADRON [Concomitant]

REACTIONS (7)
  - WHITE BLOOD CELL COUNT DECREASED [None]
  - PAIN [None]
  - RED BLOOD CELL COUNT DECREASED [None]
  - ANAEMIA [None]
  - HAEMATOCRIT DECREASED [None]
  - PLATELET DISORDER [None]
  - HAEMOGLOBIN DECREASED [None]
